FAERS Safety Report 15012385 (Version 1)
Quarter: 2018Q2

REPORT INFORMATION
  Report Type: Spontaneous
  Country: CN (occurrence: CN)
  Receive Date: 20180614
  Receipt Date: 20180614
  Transmission Date: 20180711
  Serious: Yes (Hospitalization)
  Sender: FDA-Public Use
  Company Number: CN-MYLANLABS-2018M1039745

PATIENT
  Age: 29 Year
  Sex: Male

DRUGS (2)
  1. MEROPENEM. [Concomitant]
     Active Substance: MEROPENEM
     Indication: PANCREATITIS ACUTE
     Route: 065
  2. VANCOMYCIN [Suspect]
     Active Substance: VANCOMYCIN
     Indication: PANCREATITIS ACUTE
     Route: 042

REACTIONS (1)
  - Type I hypersensitivity [Recovering/Resolving]
